FAERS Safety Report 16166207 (Version 1)
Quarter: 2019Q2

REPORT INFORMATION
  Report Type: Spontaneous
  Country: US (occurrence: US)
  Receive Date: 20190406
  Receipt Date: 20190406
  Transmission Date: 20190711
  Serious: No
  Sender: FDA-Public Use
  Company Number: US-ACCORD-071377

PATIENT
  Sex: Female

DRUGS (1)
  1. PIOGLITAZONE ACCORD [Suspect]
     Active Substance: PIOGLITAZONE
     Indication: PRODUCT USED FOR UNKNOWN INDICATION
     Dosage: DOSE: 30 MG ONCE A DAY

REACTIONS (2)
  - Blood glucose increased [Unknown]
  - Withdrawal syndrome [Unknown]
